FAERS Safety Report 15290632 (Version 1)
Quarter: 2018Q3

REPORT INFORMATION
  Report Type: Report from Study
  Country: US (occurrence: US)
  Receive Date: 20180817
  Receipt Date: 20180817
  Transmission Date: 20181010
  Serious: Yes (Hospitalization, Other)
  Sender: FDA-Public Use
  Company Number: US-GILEAD-2018-0356288

PATIENT
  Age: 41 Year
  Sex: Male

DRUGS (23)
  1. SENNA                              /00571901/ [Concomitant]
     Active Substance: SENNOSIDES A AND B
  2. SPIRIVA [Concomitant]
     Active Substance: TIOTROPIUM BROMIDE MONOHYDRATE
  3. LOSARTAN. [Concomitant]
     Active Substance: LOSARTAN
  4. SMZ?TMP [Concomitant]
     Active Substance: SULFAMETHOXAZOLE\TRIMETHOPRIM
  5. CREON [Concomitant]
     Active Substance: PANCRELIPASE AMYLASE\PANCRELIPASE LIPASE\PANCRELIPASE PROTEASE
  6. MINERALS NOS W/VITAMINS NOS [Concomitant]
     Active Substance: MINERALS\VITAMINS
  7. AMLODIPINE [Concomitant]
     Active Substance: AMLODIPINE BESYLATE
  8. PREDNISONE. [Concomitant]
     Active Substance: PREDNISONE
  9. PULMOZYME [Concomitant]
     Active Substance: DORNASE ALFA
  10. BUDESONIDE. [Concomitant]
     Active Substance: BUDESONIDE
  11. AZITHROMYCIN ANHYDROUS. [Concomitant]
     Active Substance: AZITHROMYCIN ANHYDROUS
  12. MONTELUKAST [Concomitant]
     Active Substance: MONTELUKAST SODIUM
  13. IBUPROFEN. [Concomitant]
     Active Substance: IBUPROFEN
  14. GABAPENTIN. [Concomitant]
     Active Substance: GABAPENTIN
  15. AZTREONAM LYSINE [Suspect]
     Active Substance: AZTREONAM LYSINE
     Indication: CYSTIC FIBROSIS
     Dosage: 75 MG, TID
     Route: 055
     Dates: start: 20150707
  16. VOLTAREN [Concomitant]
     Active Substance: DICLOFENAC SODIUM
  17. DICLOFENAC [Concomitant]
     Active Substance: DICLOFENAC
  18. SYMBICORT [Concomitant]
     Active Substance: BUDESONIDE\FORMOTEROL FUMARATE DIHYDRATE
  19. LANTUS [Concomitant]
     Active Substance: INSULIN GLARGINE
  20. VITAMIN D3 [Concomitant]
     Active Substance: CHOLECALCIFEROL
  21. OYSCO D                            /01204201/ [Concomitant]
  22. FREESTYLE [Concomitant]
  23. VENLAFAXINE [Concomitant]
     Active Substance: VENLAFAXINE HYDROCHLORIDE

REACTIONS (1)
  - Lung infection [Unknown]

NARRATIVE: CASE EVENT DATE: 20180713
